FAERS Safety Report 17211789 (Version 1)
Quarter: 2019Q4

REPORT INFORMATION
  Report Type: Spontaneous
  Country: FR (occurrence: FR)
  Receive Date: 20191230
  Receipt Date: 20191230
  Transmission Date: 20200122
  Serious: Yes (Hospitalization)
  Sender: FDA-Public Use
  Company Number: FR-TEVA-2019-FR-1159943

PATIENT
  Age: 59 Year
  Sex: Male
  Weight: 82 kg

DRUGS (3)
  1. SIMVASTATINE [Suspect]
     Active Substance: SIMVASTATIN
     Indication: DYSLIPIDAEMIA
     Dosage: 1 CP
     Route: 048
     Dates: end: 20191015
  2. PEGASYS [Suspect]
     Active Substance: PEGINTERFERON ALFA-2A
     Indication: ERDHEIM-CHESTER DISEASE
     Dosage: 180 MICROGRAM
     Route: 058
     Dates: start: 20180301, end: 20191015
  3. ENTRESTO [Suspect]
     Active Substance: SACUBITRIL\VALSARTAN
     Indication: CARDIAC FAILURE
     Dosage: 1 CP
     Route: 048
     Dates: start: 201804, end: 20191015

REACTIONS (1)
  - Hepatocellular injury [Recovering/Resolving]

NARRATIVE: CASE EVENT DATE: 20190911
